FAERS Safety Report 15840582 (Version 2)
Quarter: 2019Q1

REPORT INFORMATION
  Report Type: Spontaneous
  Country: FR (occurrence: FR)
  Receive Date: 20190118
  Receipt Date: 20190124
  Transmission Date: 20190417
  Serious: Yes (Other)
  Sender: FDA-Public Use
  Company Number: FR-ORION CORPORATION ORION PHARMA-TREX2019-0108

PATIENT
  Age: 68 Year
  Sex: Female

DRUGS (6)
  1. IMETH [Suspect]
     Active Substance: METHOTREXATE SODIUM
     Route: 048
     Dates: start: 201809
  2. VITAMIN D [Concomitant]
     Active Substance: CHOLECALCIFEROL
     Route: 065
  3. DIPROSONE [Concomitant]
     Active Substance: BETAMETHASONE DIPROPIONATE
     Indication: PSORIASIS
     Route: 061
  4. ATACAND [Suspect]
     Active Substance: CANDESARTAN CILEXETIL
     Indication: HYPERTENSION
     Dosage: STRENGTH: 8 MG
     Route: 065
     Dates: start: 199001
  5. SPECIALFOLDINE [Concomitant]
     Active Substance: FOLIC ACID
     Dosage: 5 MG
     Route: 065
     Dates: start: 201709
  6. IMETH [Suspect]
     Active Substance: METHOTREXATE SODIUM
     Indication: PSORIASIS
     Dosage: STRENGTH: 10 MG
     Route: 048
     Dates: start: 201709, end: 201809

REACTIONS (10)
  - Vomiting [Recovered/Resolved]
  - Alopecia [Unknown]
  - Eye irritation [Not Recovered/Not Resolved]
  - Dental caries [Not Recovered/Not Resolved]
  - Fracture delayed union [Unknown]
  - Abdominal pain [Not Recovered/Not Resolved]
  - Lacrimation increased [Not Recovered/Not Resolved]
  - Nausea [Not Recovered/Not Resolved]
  - Asthenia [Not Recovered/Not Resolved]
  - Diarrhoea [Not Recovered/Not Resolved]

NARRATIVE: CASE EVENT DATE: 201709
